FAERS Safety Report 6527626-3 (Version None)
Quarter: 2010Q1

REPORT INFORMATION
  Report Type: 
  Country: None (occurrence: None)
  Receive Date: 20100105
  Receipt Date: 20100101
  Transmission Date: 20100710
  Serious: Yes (Other)
  Sender: FDA-Public Use
  Company Number: BR-PFIZER INC-2009303910

PATIENT
  Sex: Male

DRUGS (2)
  1. VIAGRA [Suspect]
     Indication: PENIS DISORDER
     Dosage: UNK
     Route: 048
     Dates: start: 19990101
  2. CIALIS [Suspect]

REACTIONS (5)
  - ANXIETY [None]
  - DRUG INEFFECTIVE [None]
  - ERECTILE DYSFUNCTION [None]
  - HERNIA [None]
  - NEOPLASM MALIGNANT [None]
